FAERS Safety Report 8819461 (Version 1)
Quarter: 2012Q4

REPORT INFORMATION
  Report Type: 
  Country: NL (occurrence: NL)
  Receive Date: 20121001
  Receipt Date: 20121001
  Transmission Date: 20130627
  Serious: Yes (Disabling)
  Sender: FDA-Public Use
  Company Number: NL-AMGEN-NLDSP2012061280

PATIENT
  Age: 54 Year
  Sex: Male

DRUGS (5)
  1. ENBREL [Suspect]
     Indication: PSORIATIC ARTHROPATHY
     Dosage: 50 mg, weekly
     Dates: start: 20110920
  2. CELEBREX [Concomitant]
     Dosage: UNK UNK, UNK
  3. AMLODIPINE [Concomitant]
     Dosage: UNK UNK, UNK
  4. MTX                                /00113801/ [Concomitant]
     Dosage: UNK UNK, UNK
  5. FOLIC ACID [Concomitant]
     Dosage: UNK UNK, UNK

REACTIONS (1)
  - Fatigue [Not Recovered/Not Resolved]
